FAERS Safety Report 8829400 (Version 1)
Quarter: 2012Q4

REPORT INFORMATION
  Report Type: 
  Country: US (occurrence: US)
  Receive Date: 20121008
  Receipt Date: 20121008
  Transmission Date: 20130627
  Serious: Yes (Other)
  Sender: FDA-Public Use
  Company Number: US-ROCHE-1134316

PATIENT
  Sex: Male

DRUGS (2)
  1. RITUXAN [Suspect]
     Indication: LYMPHOMA
     Route: 065
     Dates: start: 20010410
  2. RITUXAN [Suspect]
     Indication: OFF LABEL USE

REACTIONS (4)
  - Arm amputation [Unknown]
  - Lymphadenopathy [Unknown]
  - Muscle atrophy [Unknown]
  - Atrophy [Unknown]
